FAERS Safety Report 17369360 (Version 1)
Quarter: 2020Q1

REPORT INFORMATION
  Report Type: Spontaneous
  Country: US (occurrence: US)
  Receive Date: 20200120
  Receipt Date: 20200120
  Transmission Date: 20200409
  Serious: No
  Sender: FDA-Public Use
  Company Number: None

PATIENT
  Age: 26 Year
  Sex: Female

DRUGS (1)
  1. EMGALITY [Suspect]
     Active Substance: GALCANEZUMAB-GNLM
     Indication: MIGRAINE PROPHYLAXIS
     Route: 058
     Dates: start: 20191119, end: 20200120

REACTIONS (3)
  - Menstruation irregular [None]
  - Polymenorrhoea [None]
  - Menorrhagia [None]

NARRATIVE: CASE EVENT DATE: 20191201
